FAERS Safety Report 8813833 (Version 1)
Quarter: 2012Q4

REPORT INFORMATION
  Report Type: 
  Country: US (occurrence: US)
  Receive Date: 20120928
  Receipt Date: 20120928
  Transmission Date: 20130627
  Serious: No
  Sender: FDA-Public Use
  Company Number: US-BIOGENIDEC-2012BI040454

PATIENT
  Age: 48 None
  Sex: Female

DRUGS (1)
  1. TYSABRI [Suspect]
     Indication: MULTIPLE SCLEROSIS
     Route: 042
     Dates: start: 20111214

REACTIONS (5)
  - Intervertebral disc degeneration [Not Recovered/Not Resolved]
  - Faecal incontinence [Recovered/Resolved]
  - Headache [Unknown]
  - Dizziness [Unknown]
  - Multiple sclerosis relapse [Not Recovered/Not Resolved]
